FAERS Safety Report 21488927 (Version 1)
Quarter: 2022Q4

REPORT INFORMATION
  Report Type: Spontaneous
  Country: JP (occurrence: JP)
  Receive Date: 20221021
  Receipt Date: 20221021
  Transmission Date: 20230112
  Serious: Yes (Other)
  Sender: FDA-Public Use
  Company Number: JP-SUN PHARMACEUTICAL INDUSTRIES LTD-2022RR-359999

PATIENT
  Age: 45 Year
  Sex: Male

DRUGS (2)
  1. LANSOPRAZOLE [Suspect]
     Active Substance: LANSOPRAZOLE
     Indication: Prophylaxis against gastrointestinal ulcer
     Dosage: 15 MILLIGRAM, UNK
     Route: 048
     Dates: start: 200606
  2. CLOPIDOGREL [Suspect]
     Active Substance: CLOPIDOGREL BISULFATE
     Indication: Angina pectoris
     Dosage: 75 MILLIGRAM, UNK
     Route: 048

REACTIONS (3)
  - Neuroendocrine tumour [Recovering/Resolving]
  - Anaemia [Recovering/Resolving]
  - Blood gastrin increased [Recovered/Resolved]

NARRATIVE: CASE EVENT DATE: 20130401
